FAERS Safety Report 20890811 (Version 1)
Quarter: 2022Q2

REPORT INFORMATION
  Report Type: Spontaneous
  Country: JP (occurrence: JP)
  Receive Date: 20220530
  Receipt Date: 20220530
  Transmission Date: 20220721
  Serious: Yes (Other)
  Sender: FDA-Public Use
  Company Number: JP-TAKEDA-2022TJP051197

PATIENT

DRUGS (1)
  1. ZEJULA [Suspect]
     Active Substance: NIRAPARIB
     Indication: Ovarian cancer stage III
     Dosage: UNK
     Route: 065
     Dates: start: 202012

REACTIONS (3)
  - Ovarian cancer [Unknown]
  - Condition aggravated [Unknown]
  - Platelet count decreased [Unknown]
